FAERS Safety Report 23959075 (Version 2)
Quarter: 2024Q2

REPORT INFORMATION
  Report Type: Spontaneous
  Country: IN (occurrence: IN)
  Receive Date: 20240611
  Receipt Date: 20240614
  Transmission Date: 20240716
  Serious: Yes (Other)
  Sender: FDA-Public Use
  Company Number: IN-SUN PHARMACEUTICAL INDUSTRIES LTD-2024R1-450529

PATIENT
  Age: 50 Year
  Sex: Female

DRUGS (3)
  1. ASPIRIN\ATORVASTATIN [Suspect]
     Active Substance: ASPIRIN\ATORVASTATIN
     Indication: Angina unstable
     Dosage: 75MG AND 20MG, QD
     Route: 065
  2. ROSUVASTATIN [Concomitant]
     Active Substance: ROSUVASTATIN
     Indication: Angina unstable
     Dosage: 40 MILLIGRAM, DAILY
     Route: 065
  3. TICAGRELOR [Concomitant]
     Active Substance: TICAGRELOR
     Indication: Angina unstable
     Dosage: 90 MILLIGRAM, DAILY
     Route: 065

REACTIONS (1)
  - Necrotising myositis [Recovering/Resolving]
